FAERS Safety Report 8782986 (Version 1)
Quarter: 2012Q4

REPORT INFORMATION
  Report Type: 
  Country: US (occurrence: US)
  Receive Date: 20120913
  Receipt Date: 20120913
  Transmission Date: 20130627
  Serious: Yes (Hospitalization)
  Sender: FDA-Public Use
  Company Number: US-SHIRE-ALL1-2012-04208

PATIENT
  Sex: Male

DRUGS (1)
  1. VPRIV [Suspect]
     Indication: GAUCHER^S DISEASE
     Dosage: 10 DF(vials), Other
     Route: 041
     Dates: start: 20110306

REACTIONS (2)
  - Dehydration [Recovering/Resolving]
  - Diarrhoea [Unknown]
